FAERS Safety Report 8293683-X (Version None)
Quarter: 2012Q2

REPORT INFORMATION
  Report Type: 
  Country: None (occurrence: None)
  Receive Date: 20120418
  Receipt Date: 20120409
  Transmission Date: 20120825
  Serious: No
  Sender: FDA-Public Use
  Company Number: US-BIOGENIDEC-2012BI012690

PATIENT
  Age: 50 Year
  Sex: Female

DRUGS (2)
  1. TYSABRI [Suspect]
     Indication: MULTIPLE SCLEROSIS
     Route: 042
     Dates: start: 20100219
  2. LYRICA [Concomitant]
     Indication: PAIN IN EXTREMITY

REACTIONS (3)
  - ANXIETY [None]
  - PAIN IN EXTREMITY [None]
  - MEMORY IMPAIRMENT [None]
